FAERS Safety Report 9537776 (Version 2)
Quarter: 2014Q1

REPORT INFORMATION
  Report Type: Spontaneous
  Country: GB (occurrence: GB)
  Receive Date: 20130919
  Receipt Date: 20140321
  Transmission Date: 20141002
  Serious: Yes (Hospitalization, Disabling, Other)
  Sender: FDA-Public Use
  Company Number: GB-MYLANLABS-2013S1020342

PATIENT
  Age: 52 Year
  Sex: Female
  Weight: 69.85 kg

DRUGS (2)
  1. GABAPENTIN [Suspect]
     Indication: NECK PAIN
     Route: 048
     Dates: start: 20111120, end: 20111201
  2. GABAPENTIN [Suspect]
     Indication: PAIN IN EXTREMITY
     Route: 048
     Dates: start: 20111120, end: 20111201

REACTIONS (2)
  - Metamorphopsia [Recovered/Resolved]
  - Hypoaesthesia oral [Recovered/Resolved]
